FAERS Safety Report 4301982-9 (Version None)
Quarter: 2004Q1

REPORT INFORMATION
  Report Type: 
  Country: None (occurrence: None)
  Receive Date: 20040220
  Receipt Date: 20040206
  Transmission Date: 20041129
  Serious: Yes (Hospitalization)
  Sender: FDA-Public Use
  Company Number: 2004008481

PATIENT
  Age: 54 Year
  Sex: Male
  Weight: 95 kg

DRUGS (34)
  1. SORTIS (ATORVASTATIN) [Suspect]
     Indication: HYPERLIPIDAEMIA
     Dosage: 20 MG (DAILY), ORAL
     Route: 048
  2. PROPOFOL [Suspect]
     Indication: STUPOR
  3. LOSARTAN (LOSARTAN) [Suspect]
     Indication: ILL-DEFINED DISORDER
  4. FLUNITRAZEPAM (FLUNITRAZEPAM) [Concomitant]
     Indication: ILL-DEFINED DISORDER
  5. SUFENTANIL CITRATE [Concomitant]
  6. AMIODARONE HCL [Concomitant]
  7. LIDOCAINE [Concomitant]
  8. OMEPRAZOLE [Concomitant]
  9. PIRITRAMIDE (PIRITRAMIDE) [Concomitant]
  10. CAPTOPRIL [Concomitant]
  11. ENALAPRIL MALEATE [Concomitant]
  12. DEXAMETHASONE [Concomitant]
  13. DIAZEPAM [Concomitant]
  14. LORMETAZEPAM (LORMETAZEPAM) [Concomitant]
  15. NIFEDIPINE [Concomitant]
  16. VERAPAMIL [Concomitant]
  17. AMLODIPINE [Concomitant]
  18. SIMVASTATIN [Concomitant]
  19. ETOMIDATE (ETOMIDATE) [Concomitant]
  20. PANCURONIUM BROMIDE [Concomitant]
  21. CEFOTIAM (CEFOTIAM) [Concomitant]
  22. BROTIZOLAM (BROTIZOLAM) [Concomitant]
  23. ENOXAPARIN SODIUM [Concomitant]
  24. ACETYLSALICYLIC ACID SRT [Concomitant]
  25. METOPROLOL (METOPROLOL) [Concomitant]
  26. FUROSEMIDE [Concomitant]
  27. METOCLOPRAMIDE [Concomitant]
  28. BETA-ACETYLDIGOXIN (BETA-ACETYLDIGOXIN) [Concomitant]
  29. UNACID (AMPICILLIN SODIUM, SUBACTAM SODIUM) [Concomitant]
  30. GLIMEPIRIDE [Concomitant]
  31. EPINEPHRINE [Concomitant]
  32. DOPAMINE HCL [Concomitant]
  33. DICLOFENAC SODIUM [Concomitant]
  34. INSULIN [Concomitant]

REACTIONS (8)
  - BLOOD CREATINE PHOSPHOKINASE INCREASED [None]
  - BLOOD LACTATE DEHYDROGENASE INCREASED [None]
  - C-REACTIVE PROTEIN INCREASED [None]
  - DRUG INTERACTION [None]
  - MUSCLE DISORDER [None]
  - POST PROCEDURAL COMPLICATION [None]
  - SUPRAVENTRICULAR TACHYCARDIA [None]
  - VENTRICULAR EXTRASYSTOLES [None]
